FAERS Safety Report 4466793-2 (Version None)
Quarter: 2004Q3

REPORT INFORMATION
  Report Type: 
  Country: None (occurrence: None)
  Receive Date: 20040930
  Receipt Date: 20040924
  Transmission Date: 20050211
  Serious: Yes (Life-Threatening, Hospitalization)
  Sender: FDA-Public Use
  Company Number: 2004PL000048

PATIENT
  Age: 31 Year
  Sex: Male

DRUGS (1)
  1. IMURAN [Suspect]
     Indication: CROHN'S DISEASE
     Dosage: 100 MG; DAILY; ORAL
     Route: 048
     Dates: start: 20040702, end: 20040731

REACTIONS (9)
  - BONE MARROW DEPRESSION [None]
  - CLOSTRIDIUM COLITIS [None]
  - ENZYME ABNORMALITY [None]
  - ESCHERICHIA SEPSIS [None]
  - HERPES SIMPLEX [None]
  - PANCYTOPENIA [None]
  - PERIRECTAL ABSCESS [None]
  - PHARYNGITIS [None]
  - STREPTOCOCCAL SEPSIS [None]
